FAERS Safety Report 18535494 (Version 4)
Quarter: 2025Q4

REPORT INFORMATION
  Report Type: Spontaneous
  Country: US (occurrence: US)
  Receive Date: 20201123
  Receipt Date: 20251224
  Transmission Date: 20260118
  Serious: Yes (Death, Other)
  Sender: TEVA
  Company Number: US-TEVA-2020-US-1851575

PATIENT
  Age: 57 Year
  Sex: Male

DRUGS (25)
  1. HYDROCHLOROTHIAZIDE\VALSARTAN [Suspect]
     Active Substance: HYDROCHLOROTHIAZIDE\VALSARTAN
     Indication: Hypertension
     Dosage: DOSAGE TEXT: VALSARTAN 320 MG/ HYDROCHLOROTHIAZIDE 25 MG
     Route: 065
     Dates: start: 20140424, end: 20160410
  2. LEVOTHYROXINE [Concomitant]
     Active Substance: LEVOTHYROXINE
     Indication: Thyroid disorder
     Dosage: DOSAGE TEXT: ONCE A DAY
     Route: 065
     Dates: start: 201401, end: 20200416
  3. CITALOPRAM [Concomitant]
     Active Substance: CITALOPRAM
     Indication: Anxiety
     Dosage: DOSAGE TEXT: ONCE A DAY
     Dates: start: 2012, end: 20200416
  4. OMEPRAZOLE [Concomitant]
     Active Substance: OMEPRAZOLE
     Indication: Gastrooesophageal reflux disease
     Dosage: DOSAGE TEXT: ONCE A DAY
     Route: 065
     Dates: end: 20200416
  5. TESTOSTERONE [Concomitant]
     Active Substance: TESTOSTERONE
     Indication: Blood testosterone decreased
     Dosage: DOSAGE TEXT: ONCE A DAY
     Route: 065
     Dates: end: 20200416
  6. ALPRAZOLAM [Concomitant]
     Active Substance: ALPRAZOLAM
     Indication: Anxiety
     Dosage: DOSAGE TEXT: ONCE A DAY
     Route: 065
     Dates: start: 2012, end: 20200416
  7. DIOVAN [Suspect]
     Active Substance: VALSARTAN
     Indication: Hypertension
     Dosage: DOSAGE TEXT: ONCE A DAY
     Route: 065
     Dates: start: 2005, end: 2014
  8. ASPIRIN [Concomitant]
     Active Substance: ASPIRIN
     Indication: Pain
     Dosage: TIME INTERVAL: AS NECESSARY
     Route: 065
     Dates: end: 20200416
  9. PRILOSEC [Concomitant]
     Active Substance: OMEPRAZOLE MAGNESIUM
     Indication: Product used for unknown indication
     Dosage: DOSAGE TEXT: FOR 6 WEEKS
     Route: 048
     Dates: start: 20160721
  10. SYNTHROID [Concomitant]
     Active Substance: LEVOTHYROXINE SODIUM
     Indication: Product used for unknown indication
     Route: 048
     Dates: start: 20160721
  11. ROXICODONE [Concomitant]
     Active Substance: OXYCODONE HYDROCHLORIDE
     Indication: Breakthrough pain
     Dosage: DOSAGE TEXT: PRN
     Route: 048
     Dates: start: 20160721
  12. XELODA [Concomitant]
     Active Substance: CAPECITABINE
     Indication: Product used for unknown indication
     Dates: start: 20160628
  13. XELODA [Concomitant]
     Active Substance: CAPECITABINE
     Indication: Product used for unknown indication
     Route: 048
  14. VITAMIN B12 [Concomitant]
     Active Substance: CYANOCOBALAMIN
     Indication: Product used for unknown indication
     Dosage: DOSAGE TEXT: 1000 MICROGRAM/1 ML VIAL, Q4W FOR 30 DAYS
     Route: 030
     Dates: start: 20180709
  15. TESTOSTERONE CYPIONATE [Concomitant]
     Active Substance: TESTOSTERONE CYPIONATE
     Indication: Product used for unknown indication
     Dosage: DOSAGE TEXT: 200 MG/1 ML VIAL, 1ML IM Q4W
     Route: 030
     Dates: start: 20180709
  16. EFFEXOR XR [Concomitant]
     Active Substance: VENLAFAXINE HYDROCHLORIDE
     Indication: Product used for unknown indication
     Dosage: DOSAGE TEXT: FOR 30 DAYS
     Route: 048
     Dates: start: 20171005
  17. AMBIEN [Concomitant]
     Active Substance: ZOLPIDEM TARTRATE
     Indication: Product used for unknown indication
     Dosage: DOSAGE TEXT: QHS FOR 30 DAYS
     Route: 048
     Dates: start: 20170426
  18. PEPCID [Concomitant]
     Active Substance: FAMOTIDINE
     Indication: Product used for unknown indication
     Route: 048
     Dates: start: 20180310
  19. FLOMAX [Concomitant]
     Active Substance: TAMSULOSIN HYDROCHLORIDE
     Indication: Product used for unknown indication
     Dosage: DOSAGE TEXT: BED TIME
     Route: 048
     Dates: start: 20180310
  20. POTASSIUM CHLORIDE [Concomitant]
     Active Substance: POTASSIUM CHLORIDE
     Indication: Product used for unknown indication
     Route: 065
     Dates: end: 20170111
  21. SPIRONOLACTONE [Concomitant]
     Active Substance: SPIRONOLACTONE
     Route: 065
     Dates: end: 20170111
  22. CELEXA [Concomitant]
     Active Substance: CITALOPRAM HYDROBROMIDE
     Indication: Product used for unknown indication
     Route: 048
     Dates: start: 20151203
  23. BACTRIM DS [Concomitant]
     Active Substance: SULFAMETHOXAZOLE\TRIMETHOPRIM
     Indication: Product used for unknown indication
     Dosage: DOSAGE TEXT: SULFAMETHOXAZOLE 800 MG, TRIMETHOPRIM 160 MG 2 TAB ORAL BID FOR 7 DAYS
     Route: 048
     Dates: start: 20170305
  24. EMLA [Concomitant]
     Active Substance: LIDOCAINE\PRILOCAINE
     Indication: Product used for unknown indication
     Dosage: DOSAGE TEXT: LIDOCAINE 2.5 %, PRILOC 2.5 % CREAM 5 GM ONCE
     Route: 061
     Dates: start: 20160613
  25. VALSARTAN [Suspect]
     Active Substance: VALSARTAN
     Indication: Hypertension
     Dosage: SOLCO
     Route: 065
     Dates: start: 20170828, end: 20180728

REACTIONS (4)
  - Rectal cancer metastatic [Fatal]
  - Colon cancer metastatic [Unknown]
  - Hepatic cancer [Unknown]
  - Large intestine polyp [Unknown]

NARRATIVE: CASE EVENT DATE: 20150101
